FAERS Safety Report 22609511 (Version 2)
Quarter: 2023Q2

REPORT INFORMATION
  Report Type: Spontaneous
  Country: FR (occurrence: FR)
  Receive Date: 20230616
  Receipt Date: 20230629
  Transmission Date: 20230722
  Serious: Yes (Other)
  Sender: FDA-Public Use
  Company Number: FR-GILEAD-2023-0632822

PATIENT
  Age: 75 Year
  Sex: Male

DRUGS (2)
  1. BIKTARVY [Suspect]
     Active Substance: BICTEGRAVIR SODIUM\EMTRICITABINE\TENOFOVIR ALAFENAMIDE FUMARATE
     Indication: HIV infection
     Dosage: UNK
     Route: 065
     Dates: start: 2022
  2. ALGELDRATE\SODIUM ALGINATE [Suspect]
     Active Substance: ALGELDRATE\SODIUM ALGINATE
     Indication: Product used for unknown indication
     Route: 065

REACTIONS (3)
  - Castleman^s disease [Unknown]
  - Viral load [Unknown]
  - Drug interaction [Unknown]
